FAERS Safety Report 4507739-8 (Version None)
Quarter: 2004Q4

REPORT INFORMATION
  Report Type: 
  Country: None (occurrence: None)
  Receive Date: 20041018
  Receipt Date: 20040719
  Transmission Date: 20050328
  Serious: No
  Sender: FDA-Public Use
  Company Number: 207460

PATIENT
  Age: 58 Year
  Sex: Female

DRUGS (3)
  1. XOLAIR [Suspect]
     Indication: ASTHMA
     Dosage: 150MG, 1/MONTH, SUBCUTANEOUS
     Route: 058
     Dates: start: 20040218
  2. CLARINEX [Concomitant]
  3. ORAL HYPOGLCEMIC (HYPOGLYCEMIC NOS) [Concomitant]

REACTIONS (1)
  - RASH MACULO-PAPULAR [None]
